FAERS Safety Report 6810855-9 (Version None)
Quarter: 2010Q2

REPORT INFORMATION
  Report Type: 
  Country: None (occurrence: None)
  Receive Date: 20100630
  Receipt Date: 20080407
  Transmission Date: 20101027
  Serious: No
  Sender: FDA-Public Use
  Company Number: US-PFIZER INC-2008031645

PATIENT
  Sex: Female
  Weight: 95.454 kg

DRUGS (3)
  1. ESTRING [Suspect]
     Indication: OESTROGEN DEFICIENCY
  2. TOPROL-XL [Concomitant]
     Indication: HYPERTENSION
  3. VITAMINS [Concomitant]

REACTIONS (4)
  - FUNGAL INFECTION [None]
  - PAIN IN EXTREMITY [None]
  - POOR PERIPHERAL CIRCULATION [None]
  - VULVOVAGINAL DISCOMFORT [None]
